FAERS Safety Report 7244651-8 (Version None)
Quarter: 2011Q1

REPORT INFORMATION
  Report Type: 
  Country: None (occurrence: None)
  Receive Date: 20110125
  Receipt Date: 20100607
  Transmission Date: 20110831
  Serious: No
  Sender: FDA-Public Use
  Company Number: US-MYLANLABS-2010S1010151

PATIENT
  Sex: Male

DRUGS (2)
  1. CAPTOPRIL/HYDROCHLOROTHIAZIDE TABLETS, USP [Suspect]
     Route: 048
  2. CAPTOPRIL/HYDROCHLOROTHIAZIDE TABLETS, USP [Suspect]
     Indication: BLOOD PRESSURE
     Route: 048

REACTIONS (3)
  - BLOOD PRESSURE INADEQUATELY CONTROLLED [None]
  - URINE OUTPUT DECREASED [None]
  - DRUG EFFECT DECREASED [None]
